FAERS Safety Report 15638687 (Version 1)
Quarter: 2018Q4

REPORT INFORMATION
  Report Type: Spontaneous
  Country: US (occurrence: US)
  Receive Date: 20181120
  Receipt Date: 20181120
  Transmission Date: 20190205
  Serious: No
  Sender: FDA-Public Use
  Company Number: US-JNJFOC-20180223688

PATIENT
  Sex: Female

DRUGS (12)
  1. ASPIRIN. [Concomitant]
     Active Substance: ASPIRIN
  2. BIOTIN [Concomitant]
     Active Substance: BIOTIN
  3. FAMOTIDINE. [Concomitant]
     Active Substance: FAMOTIDINE
  4. OXYBUTYNIN. [Concomitant]
     Active Substance: OXYBUTYNIN CHLORIDE
  5. VITAMIN D [Concomitant]
     Active Substance: CHOLECALCIFEROL
  6. HCTZ [Concomitant]
     Active Substance: HYDROCHLOROTHIAZIDE
  7. TYLENOL [Concomitant]
     Active Substance: ACETAMINOPHEN
  8. SIMVASTATIN. [Concomitant]
     Active Substance: SIMVASTATIN
  9. OCUVITE [Concomitant]
     Active Substance: VITAMINS
  10. IMBRUVICA [Suspect]
     Active Substance: IBRUTINIB
     Indication: PRODUCT USED FOR UNKNOWN INDICATION
     Route: 065
  11. IRON [Concomitant]
     Active Substance: IRON
  12. ONDANSETRON [Concomitant]
     Active Substance: ONDANSETRON

REACTIONS (2)
  - Laboratory test abnormal [Not Recovered/Not Resolved]
  - Product dose omission [Unknown]
